FAERS Safety Report 20092149 (Version 2)
Quarter: 2021Q4

REPORT INFORMATION
  Report Type: Spontaneous
  Country: GB (occurrence: GB)
  Receive Date: 20211119
  Receipt Date: 20211203
  Transmission Date: 20220303
  Serious: Yes (Other)
  Sender: FDA-Public Use
  Company Number: GB-VELOXIS PHARMACEUTICALS-2021VELGB-000801

PATIENT
  Age: 52 Year
  Sex: Female

DRUGS (3)
  1. MYCOPHENOLATE MOFETIL [Suspect]
     Active Substance: MYCOPHENOLATE MOFETIL
     Indication: Product used for unknown indication
     Route: 065
  2. TACROLIMUS [Suspect]
     Active Substance: TACROLIMUS
     Indication: Product used for unknown indication
     Route: 065
  3. EPREX [Suspect]
     Active Substance: ERYTHROPOIETIN
     Indication: Nephrogenic anaemia
     Dosage: 20000 IU 3 TIMES EVERY 1 WEEK, 60000 IU
     Route: 058
     Dates: start: 20080605

REACTIONS (4)
  - Folate deficiency [Unknown]
  - Hyperparathyroidism [Unknown]
  - Drug ineffective [Unknown]
  - Anti-erythropoietin antibody negative [Recovered/Resolved]

NARRATIVE: CASE EVENT DATE: 20201118
